FAERS Safety Report 17012356 (Version 2)
Quarter: 2019Q4

REPORT INFORMATION
  Report Type: Spontaneous
  Country: CN (occurrence: CN)
  Receive Date: 20191108
  Receipt Date: 20191114
  Transmission Date: 20200122
  Serious: Yes (Hospitalization)
  Sender: FDA-Public Use
  Company Number: CN-009507513-1909CHN004949

PATIENT
  Age: 59 Year
  Sex: Female
  Weight: 64.5 kg

DRUGS (2)
  1. ZEPATIER [Suspect]
     Active Substance: ELBASVIR\GRAZOPREVIR
     Indication: HEPATITIS C
     Dosage: 1 TABLET, QD
     Route: 048
     Dates: start: 201907, end: 201909
  2. ZEPATIER [Suspect]
     Active Substance: ELBASVIR\GRAZOPREVIR
     Dosage: TWO TABLETS ONCE EVERY TWO DAYS
     Route: 048
     Dates: start: 2019

REACTIONS (4)
  - Dry mouth [Recovered/Resolved]
  - Oedema peripheral [Recovered/Resolved]
  - Extubation [Unknown]
  - Abnormal weight gain [Recovered/Resolved]

NARRATIVE: CASE EVENT DATE: 2019
